FAERS Safety Report 25088102 (Version 2)
Quarter: 2025Q1

REPORT INFORMATION
  Report Type: Spontaneous
  Country: IT (occurrence: IT)
  Receive Date: 20250318
  Receipt Date: 20250319
  Transmission Date: 20250408
  Serious: Yes (Life-Threatening, Hospitalization, Other)
  Sender: AUROBINDO
  Company Number: IT-MLMSERVICE-20250221-PI425262-00190-1

PATIENT
  Age: 64 Year
  Sex: Male

DRUGS (5)
  1. LAMOTRIGINE [Suspect]
     Active Substance: LAMOTRIGINE
     Indication: Seizure prophylaxis
     Dosage: 10 MILLIGRAM, TWO TIMES A DAY (
     Route: 065
  2. LAMOTRIGINE [Suspect]
     Active Substance: LAMOTRIGINE
     Dosage: 60 MILLIGRAM, TWO TIMES A DAY
     Route: 065
  3. LEVETIRACETAM [Suspect]
     Active Substance: LEVETIRACETAM
     Indication: Seizure prophylaxis
     Route: 065
  4. LEVETIRACETAM [Suspect]
     Active Substance: LEVETIRACETAM
     Indication: Epilepsy
  5. METHYLPREDNISOLONE [Suspect]
     Active Substance: METHYLPREDNISOLONE
     Indication: Product used for unknown indication
     Dosage: 1 MILLIGRAM/KILOGRAM, ONCE A DAY
     Route: 065

REACTIONS (15)
  - SJS-TEN overlap [Recovering/Resolving]
  - Irritability [Unknown]
  - Somnolence [Unknown]
  - Pyrexia [Unknown]
  - Conjunctivitis [Unknown]
  - Tissue rupture [Unknown]
  - Dysphagia [Unknown]
  - Eye irritation [Unknown]
  - Conjunctival hyperaemia [Unknown]
  - Mouth ulceration [Unknown]
  - Nasal mucosal disorder [Unknown]
  - Extravasation blood [Unknown]
  - Mucocutaneous disorder [Unknown]
  - Nail dystrophy [Unknown]
  - Dysuria [Unknown]
